FAERS Safety Report 18071727 (Version 1)
Quarter: 2020Q3

REPORT INFORMATION
  Report Type: Report from Study
  Country: FR (occurrence: FR)
  Receive Date: 20200727
  Receipt Date: 20200727
  Transmission Date: 20201103
  Serious: Yes (Hospitalization, Other)
  Sender: FDA-Public Use
  Company Number: FR-ROCHE-2646680

PATIENT
  Age: 63 Year
  Sex: Female
  Weight: 71 kg

DRUGS (15)
  1. ZYVOXID [Suspect]
     Active Substance: LINEZOLID
     Indication: PRODUCT USED FOR UNKNOWN INDICATION
     Route: 065
  2. MYCOPHENOLATE MOFETIL. [Suspect]
     Active Substance: MYCOPHENOLATE MOFETIL
     Indication: PROPHYLAXIS AGAINST GRAFT VERSUS HOST DISEASE
     Route: 065
     Dates: start: 20181107
  3. CYCLOSPORINE. [Suspect]
     Active Substance: CYCLOSPORINE
     Indication: PROPHYLAXIS AGAINST GRAFT VERSUS HOST DISEASE
     Route: 065
     Dates: start: 20181117, end: 20181122
  4. NOXAFIL [Suspect]
     Active Substance: POSACONAZOLE
     Indication: PRODUCT USED FOR UNKNOWN INDICATION
     Route: 065
     Dates: start: 20181107, end: 20181120
  5. CYCLOSPORINE. [Suspect]
     Active Substance: CYCLOSPORINE
     Dosage: 50 MILLIGRAM, QD
     Route: 065
     Dates: start: 20181124
  6. PANTOPRAZOLE [Concomitant]
     Active Substance: PANTOPRAZOLE
     Dosage: 40 MILLIGRAM
  7. NOXAFIL [Suspect]
     Active Substance: POSACONAZOLE
     Route: 065
  8. CYCLOSPORINE. [Suspect]
     Active Substance: CYCLOSPORINE
     Dosage: 100 MILLIGRAM, QD
     Route: 065
     Dates: start: 20181110, end: 20181113
  9. CYCLOSPORINE. [Suspect]
     Active Substance: CYCLOSPORINE
     Dosage: 220 MILLIGRAM, QD
     Route: 065
     Dates: start: 20181105, end: 20181109
  10. AXEPIM [Suspect]
     Active Substance: CEFEPIME HYDROCHLORIDE
     Indication: PRODUCT USED FOR UNKNOWN INDICATION
     Route: 065
  11. INCB039110 [Suspect]
     Active Substance: ITACITINIB
     Indication: PROPHYLAXIS AGAINST GRAFT VERSUS HOST DISEASE
     Route: 048
     Dates: start: 20181123, end: 20190207
  12. CYCLOSPORINE. [Suspect]
     Active Substance: CYCLOSPORINE
     Dosage: 60 MILLIGRAM, QD
     Route: 065
     Dates: start: 20181115, end: 20181115
  13. ITACITINIB [Suspect]
     Active Substance: ITACITINIB
     Indication: PRODUCT USED FOR UNKNOWN INDICATION
     Dosage: 100 MILLIGRAM, QD
     Route: 065
     Dates: start: 20181103
  14. ZOLPIDEM [Concomitant]
     Active Substance: ZOLPIDEM TARTRATE
     Dosage: UNK
     Dates: start: 20181031, end: 20181126
  15. INCB039110 [Suspect]
     Active Substance: ITACITINIB
     Dosage: 200 MILLIGRAM, QD
     Route: 048
     Dates: start: 20181103, end: 20181109

REACTIONS (3)
  - Aplasia [Not Recovered/Not Resolved]
  - Hepatocellular injury [Unknown]
  - Jaundice cholestatic [Recovered/Resolved]

NARRATIVE: CASE EVENT DATE: 20181109
